FAERS Safety Report 8069819 (Version 2)
Quarter: 2012Q4

REPORT INFORMATION
  Report Type: 
  Country: MX (occurrence: MX)
  Receive Date: 20110804
  Receipt Date: 20120904
  Transmission Date: 20130627
  Serious: Yes (Hospitalization, Other)
  Sender: FDA-Public Use
  Company Number: PHHY2011MX66126

PATIENT
  Age: 81 Year
  Sex: Male

DRUGS (6)
  1. DIOVAN [Suspect]
     Indication: HYPERTENSION
     Dosage: 2 tablets (80 mg) per day
  2. METOPROLOL [Concomitant]
     Indication: HYPERTENSION
     Dosage: 2 DF,daily
     Dates: start: 2006
  3. HYDROCHLOROTHIAZIDE [Concomitant]
     Indication: HYPERTENSION
     Dosage: 1 DF, daily
     Dates: start: 2008
  4. ISOSORBIDE [Concomitant]
     Indication: HYPERTENSION
     Dosage: 2 DF, daily
     Dates: start: 2010
  5. ACETYLSALICYLIC ACID [Concomitant]
     Indication: HYPERTENSION
     Dosage: 1 DF, (100 mg )daily
     Dates: start: 2006
  6. ENALAPRIL [Concomitant]
     Indication: HYPERTENSION
     Dosage: 1 DF, UNK
     Dates: start: 2006

REACTIONS (4)
  - Hypertensive crisis [Recovered/Resolved]
  - Renal failure [Recovered/Resolved]
  - Blood pressure inadequately controlled [Recovered/Resolved]
  - Treatment noncompliance [None]
